FAERS Safety Report 5231229-0 (Version None)
Quarter: 2007Q1

REPORT INFORMATION
  Report Type: 
  Country: None (occurrence: None)
  Receive Date: 20070206
  Receipt Date: 20070129
  Transmission Date: 20070707
  Serious: Yes (Other)
  Sender: FDA-Public Use
  Company Number: US-JNJFOC-20070107628

PATIENT
  Sex: Female
  Weight: 48.99 kg

DRUGS (5)
  1. FENTANYL TRANSDERMAL SYSTEM [Suspect]
     Indication: PAIN
     Route: 062
  2. SOMA [Concomitant]
     Indication: MYALGIA
     Route: 048
  3. NORCO [Concomitant]
     Indication: BACK PAIN
     Route: 048
  4. PLAQUENIL [Concomitant]
     Indication: FIBROMYALGIA
     Route: 048
  5. CLARITIN [Concomitant]
     Route: 065

REACTIONS (5)
  - APPLICATION SITE RASH [None]
  - INAPPROPRIATE SCHEDULE OF DRUG ADMINISTRATION [None]
  - SUICIDAL IDEATION [None]
  - THERAPEUTIC RESPONSE DECREASED [None]
  - WEIGHT INCREASED [None]
